FAERS Safety Report 4678331-X (Version None)
Quarter: 2005Q2

REPORT INFORMATION
  Report Type: 
  Country: None (occurrence: None)
  Receive Date: 20050601
  Receipt Date: 20050503
  Transmission Date: 20051028
  Serious: Yes (Other)
  Sender: FDA-Public Use
  Company Number: PHBS2005BE06298

PATIENT
  Age: 66 Year

DRUGS (8)
  1. VINCRISTINE + ADRIAMYCIN + DEXAMETHASONE [Concomitant]
     Dosage: 3 REGIMENS OF VAD
     Route: 065
     Dates: start: 20030501
  2. DEXAMETHASONE [Concomitant]
     Route: 065
     Dates: start: 20031013
  3. CYCLOPHOSPHAMIDE [Concomitant]
     Route: 065
     Dates: start: 20031013
  4. ETOPOSIDE [Concomitant]
     Route: 065
     Dates: start: 20031013
  5. CISPLATIN [Concomitant]
     Route: 065
     Dates: start: 20031013
  6. MELPHALAN [Concomitant]
     Route: 065
     Dates: start: 20031106
  7. BONE MARROW TRANSPLANT [Concomitant]
     Dosage: AUTOLOGOUS STEMCELL TRANSPLANT
     Route: 065
     Dates: start: 20031106
  8. ZOMETA [Suspect]
     Indication: MULTIPLE MYELOMA
     Dosage: 4 MG, QMO
     Route: 042
     Dates: start: 20030602, end: 20050504

REACTIONS (1)
  - ASEPTIC NECROSIS BONE [None]
